FAERS Safety Report 17504812 (Version 1)
Quarter: 2020Q1

REPORT INFORMATION
  Report Type: Spontaneous
  Country: CA (occurrence: CA)
  Receive Date: 20200305
  Receipt Date: 20200305
  Transmission Date: 20200409
  Serious: Yes (Other)
  Sender: FDA-Public Use
  Company Number: CA-TEVA-2020-CA-1193359

PATIENT
  Sex: Female

DRUGS (7)
  1. PROGESTERONE. [Suspect]
     Active Substance: PROGESTERONE
     Indication: DEPRESSIVE SYMPTOM
     Dosage: 2000 MILLIGRAM DAILY;
     Route: 048
  2. PROGESTERONE. [Suspect]
     Active Substance: PROGESTERONE
     Indication: MENOPAUSE
     Route: 065
  3. ESTRADIOL. [Suspect]
     Active Substance: ESTRADIOL
     Indication: DEPRESSIVE SYMPTOM
     Route: 065
  4. ESTRADIOL. [Suspect]
     Active Substance: ESTRADIOL
     Indication: PROPHYLAXIS
     Dosage: .1 MILLIGRAM DAILY;
     Route: 062
  5. ESTRADIOL. [Suspect]
     Active Substance: ESTRADIOL
     Route: 065
  6. PROGESTERONE. [Suspect]
     Active Substance: PROGESTERONE
     Indication: PROPHYLAXIS
     Route: 065
  7. ESTRADIOL. [Suspect]
     Active Substance: ESTRADIOL
     Route: 065

REACTIONS (4)
  - Off label use [Unknown]
  - Deep vein thrombosis [Unknown]
  - Product use in unapproved indication [Unknown]
  - Product use issue [Unknown]
